FAERS Safety Report 13412714 (Version 4)
Quarter: 2019Q2

REPORT INFORMATION
  Report Type: Spontaneous
  Country: US (occurrence: US)
  Receive Date: 20170406
  Receipt Date: 20190630
  Transmission Date: 20190711
  Serious: No
  Sender: FDA-Public Use
  Company Number: US-JNJFOC-20170307909

PATIENT
  Sex: Male

DRUGS (5)
  1. RISPERIDONE TABLET [Suspect]
     Active Substance: RISPERIDONE
     Indication: BIPOLAR DISORDER
     Route: 048
     Dates: start: 20090217
  2. RISPERIDONE TABLET [Suspect]
     Active Substance: RISPERIDONE
     Route: 048
     Dates: start: 20140620
  3. RISPERDAL [Suspect]
     Active Substance: RISPERIDONE
     Indication: PRODUCT USED FOR UNKNOWN INDICATION
     Route: 048
     Dates: start: 20090217, end: 20111017
  4. RISPERIDONE TABLET [Suspect]
     Active Substance: RISPERIDONE
     Route: 048
     Dates: start: 20090326, end: 20111017
  5. RISPERDAL [Suspect]
     Active Substance: RISPERIDONE
     Route: 048
     Dates: start: 20140620

REACTIONS (3)
  - Gynaecomastia [Unknown]
  - Adverse drug reaction [Unknown]
  - Emotional disorder [Unknown]
